FAERS Safety Report 5499600-X (Version None)
Quarter: 2007Q4

REPORT INFORMATION
  Report Type: 
  Country: None (occurrence: None)
  Receive Date: 20071026
  Receipt Date: 20071016
  Transmission Date: 20080405
  Serious: Yes (Other)
  Sender: FDA-Public Use
  Company Number: US-PFIZER INC-2007087896

PATIENT
  Sex: Female
  Weight: 100 kg

DRUGS (10)
  1. CHANTIX [Suspect]
     Indication: SMOKING CESSATION THERAPY
     Dates: start: 20071007, end: 20071014
  2. RISPERDAL [Concomitant]
  3. CELEXA [Concomitant]
  4. ACETYLSALICYLIC ACID SRT [Concomitant]
  5. AMBIEN [Concomitant]
  6. LYRICA [Concomitant]
  7. XANAX [Concomitant]
  8. RITALIN [Concomitant]
  9. IBUPROFEN [Concomitant]
  10. GABAPENTIN [Concomitant]

REACTIONS (12)
  - ASTHENIA [None]
  - DISCOMFORT [None]
  - DIZZINESS [None]
  - DYSPNOEA [None]
  - FEELING HOT [None]
  - HAEMOPTYSIS [None]
  - LUNG DISORDER [None]
  - NAUSEA [None]
  - PNEUMONIA [None]
  - POOR QUALITY SLEEP [None]
  - SALIVARY HYPERSECRETION [None]
  - SOMNOLENCE [None]
